FAERS Safety Report 6829133-7 (Version None)
Quarter: 2010Q3

REPORT INFORMATION
  Report Type: 
  Country: None (occurrence: None)
  Receive Date: 20100709
  Receipt Date: 20070228
  Transmission Date: 20110219
  Serious: No
  Sender: FDA-Public Use
  Company Number: US-PFIZER INC-2007006939

PATIENT
  Sex: Male
  Weight: 68.04 kg

DRUGS (6)
  1. CHANTIX [Suspect]
     Indication: EX-TOBACCO USER
     Dates: start: 20070116, end: 20070118
  2. FLOMAX [Concomitant]
  3. AVODART [Concomitant]
  4. PLAVIX [Concomitant]
  5. COREG [Concomitant]
  6. REQUIP [Concomitant]

REACTIONS (3)
  - DIZZINESS [None]
  - INSOMNIA [None]
  - NAUSEA [None]
